FAERS Safety Report 6474704-3 (Version None)
Quarter: 2009Q4

REPORT INFORMATION
  Report Type: 
  Country: None (occurrence: None)
  Receive Date: 20091204
  Receipt Date: 20091130
  Transmission Date: 20100525
  Serious: Yes (Other)
  Sender: FDA-Public Use
  Company Number: A0832281A

PATIENT
  Age: 11 Year
  Sex: Female

DRUGS (3)
  1. ADVAIR DISKUS 100/50 [Suspect]
     Indication: ASTHMA
     Dosage: 2PUFF TWICE PER DAY
     Route: 055
     Dates: start: 20080401, end: 20080901
  2. ALBUTEROL [Concomitant]
  3. NEURONTIN [Concomitant]

REACTIONS (5)
  - ASTHMA [None]
  - BRONCHIAL HYPERREACTIVITY [None]
  - OVERDOSE [None]
  - RESPIRATORY DISORDER [None]
  - STRIDOR [None]
